FAERS Safety Report 8269686-8 (Version None)
Quarter: 2012Q2

REPORT INFORMATION
  Report Type: 
  Country: None (occurrence: None)
  Receive Date: 20120406
  Receipt Date: 20120322
  Transmission Date: 20120825
  Serious: Yes (Congenital Anomaly, Other)
  Sender: FDA-Public Use
  Company Number: 20120174

PATIENT

DRUGS (6)
  1. PHENYTOIN SODIUM [Suspect]
     Indication: EPILEPSY
     Dosage: 500 MG
  2. PHENYTOIN SODIUM [Suspect]
     Indication: AFFECTIVE DISORDER
     Dosage: 500 MG
  3. CARBAMAZEPINE [Suspect]
     Indication: AFFECTIVE DISORDER
     Dosage: 1000 MG
  4. CARBAMAZEPINE [Suspect]
     Indication: EPILEPSY
     Dosage: 1000 MG
  5. TOPIRAMATE [Suspect]
     Indication: EPILEPSY
     Dosage: 400 MG
  6. TOPIRAMATE [Suspect]
     Indication: AFFECTIVE DISORDER
     Dosage: 400 MG

REACTIONS (5)
  - CONGENITAL CENTRAL NERVOUS SYSTEM ANOMALY [None]
  - SYNDACTYLY [None]
  - HEART DISEASE CONGENITAL [None]
  - MATERNAL DRUGS AFFECTING FOETUS [None]
  - PULMONARY MALFORMATION [None]
